FAERS Safety Report 21004694 (Version 1)
Quarter: 2022Q2

REPORT INFORMATION
  Report Type: Spontaneous
  Country: US (occurrence: US)
  Receive Date: 20220624
  Receipt Date: 20220624
  Transmission Date: 20220720
  Serious: No
  Sender: FDA-Public Use
  Company Number: US-SAGENT PHARMACEUTICALS-2021SAG001844

PATIENT

DRUGS (2)
  1. GLYDO [Suspect]
     Active Substance: LIDOCAINE HYDROCHLORIDE ANHYDROUS
     Indication: Pain
     Dosage: 2 %, AS DIRECTED
     Route: 061
  2. GABAPENTIN [Concomitant]
     Active Substance: GABAPENTIN
     Indication: Pain
     Dosage: UNK, AS DIRECTED
     Route: 048

REACTIONS (5)
  - Skin burning sensation [Unknown]
  - Scratch [Unknown]
  - Drug ineffective for unapproved indication [Unknown]
  - Product prescribing error [Unknown]
  - Off label use [Unknown]
